FAERS Safety Report 22236968 (Version 2)
Quarter: 2024Q1

REPORT INFORMATION
  Report Type: Report from Study
  Country: US (occurrence: US)
  Receive Date: 20230420
  Receipt Date: 20240124
  Transmission Date: 20240410
  Serious: Yes (Death, Hospitalization)
  Sender: FDA-Public Use
  Company Number: US-ABBVIE-4712851

PATIENT
  Sex: Female

DRUGS (15)
  1. VENCLEXTA [Suspect]
     Active Substance: VENETOCLAX
     Indication: Myelodysplastic syndrome
     Dosage: FORM STRENGTH: 10 MG, FREQUENCY TEXT: (1X10MG TAB) ON DAY 1
     Route: 048
  2. VENCLEXTA [Suspect]
     Active Substance: VENETOCLAX
     Indication: Myelodysplastic syndrome
     Dosage: FREQUENCY TEXT: TAKE 20MG (2X10MG TABS) ON DAY 2, FORM STRENGTH: 10 MG
     Route: 048
  3. VENCLEXTA [Suspect]
     Active Substance: VENETOCLAX
     Indication: Myelodysplastic syndrome
     Dosage: FORM STRENGTH: 50 MG, FREQUENCY TEXT: TAKE 50MG (1X50MG TAB) ON DAY 3
     Route: 048
  4. VENCLEXTA [Suspect]
     Active Substance: VENETOCLAX
     Indication: Myelodysplastic syndrome
     Dosage: FORM STRENGTH: 70 MG, FREQUENCY TEXT: (2X10MG TABS + 1X50MG TAB) DAYS 4-14
     Route: 048
  5. VENCLEXTA [Suspect]
     Active Substance: VENETOCLAX
     Indication: Myelodysplastic syndrome
     Dosage: FORM STRENGTH: 50 MG, FREQUENCY TEXT: 1 TABLET (50 MG TOTAL) 1 (ONE) ON DAY 3
     Route: 048
  6. VENCLEXTA [Suspect]
     Active Substance: VENETOCLAX
     Indication: Myelodysplastic syndrome
     Dosage: FREQUENCY TEXT: 1 TABLET (100MG) BY MOUTH ON DAY 1, FORM STRENGTH: 100 MG
     Route: 048
  7. VENCLEXTA [Suspect]
     Active Substance: VENETOCLAX
     Indication: Myelodysplastic syndrome
     Dosage: FORM STRENGTH: 200 MG, FREQUENCY TEXT: 2 TABLETS (200MG) ON DAY 2
     Route: 048
  8. VENCLEXTA [Suspect]
     Active Substance: VENETOCLAX
     Indication: Myelodysplastic syndrome
     Dosage: FREQUENCY TEXT: DAY4 1-50 MG TAB 2-10 MG DAILY FOR 14DAYS, FORM STRENGTH: 50 MG
     Route: 048
  9. VENCLEXTA [Suspect]
     Active Substance: VENETOCLAX
     Indication: Myelodysplastic syndrome
     Dosage: FORM STRENGTH: 400 MG, FREQUENCY TEXT: 4 TABLETS (400MG) DAILY THEREAFTER
     Route: 048
  10. VENCLEXTA [Suspect]
     Active Substance: VENETOCLAX
     Indication: Myelodysplastic syndrome
     Dosage: LINE OF THERAPY: FIRST
     Route: 048
     Dates: start: 20230328, end: 20230328
  11. ALLOPURINOL [Concomitant]
     Active Substance: ALLOPURINOL
     Indication: Product used for unknown indication
  12. FLONASE [Concomitant]
     Active Substance: FLUTICASONE PROPIONATE
     Indication: Product used for unknown indication
  13. ONDANSETRON [Concomitant]
     Active Substance: ONDANSETRON
     Indication: Product used for unknown indication
  14. DECITABINE [Concomitant]
     Active Substance: DECITABINE
     Indication: Product used for unknown indication
  15. ACYCLOVIR [Concomitant]
     Active Substance: ACYCLOVIR
     Indication: Product used for unknown indication

REACTIONS (3)
  - Death [Fatal]
  - Off label use [Unknown]
  - Vascular device infection [Unknown]

NARRATIVE: CASE EVENT DATE: 20230101
